FAERS Safety Report 25611833 (Version 3)
Quarter: 2025Q3

REPORT INFORMATION
  Report Type: Spontaneous
  Country: US (occurrence: US)
  Receive Date: 20250728
  Receipt Date: 20250915
  Transmission Date: 20251021
  Serious: No
  Sender: SANOFI AVENTIS
  Company Number: US-SA-2025SA215166

PATIENT
  Age: 74 Year
  Sex: Female

DRUGS (16)
  1. DUPIXENT [Suspect]
     Active Substance: DUPILUMAB
     Indication: Dermatitis atopic
     Dosage: 300 MG, QOW
     Route: 058
  2. ATORVASTATIN [Concomitant]
     Active Substance: ATORVASTATIN
  3. CALCIUM CITRATE [Concomitant]
     Active Substance: CALCIUM CITRATE
  4. CLARITIN [Concomitant]
     Active Substance: LORATADINE
  5. COENZYME Q10 [Concomitant]
     Active Substance: DIETARY SUPPLEMENT\UBIDECARENONE
  6. FERROUS SULFATE [Concomitant]
     Active Substance: FERROUS SULFATE
  7. GLUCOSAMINE [Concomitant]
     Active Substance: GLUCOSAMINE
  8. HYDROCORTISONE [Concomitant]
     Active Substance: HYDROCORTISONE
  9. LUBIPROSTONE [Concomitant]
     Active Substance: LUBIPROSTONE
  10. MAGNESIUM [Concomitant]
     Active Substance: MAGNESIUM
  11. METOPROLOL [Concomitant]
     Active Substance: METOPROLOL
  12. MIRTAZAPINE [Concomitant]
     Active Substance: MIRTAZAPINE
  13. OMEGA 3 [Concomitant]
     Active Substance: CAPSAICIN
  14. POTASSIUM [Concomitant]
     Active Substance: POTASSIUM
  15. PROLIA [Concomitant]
     Active Substance: DENOSUMAB
  16. VITAMIN B12 [Concomitant]
     Active Substance: CYANOCOBALAMIN

REACTIONS (3)
  - Arthralgia [Not Recovered/Not Resolved]
  - Myalgia [Recovered/Resolved]
  - Rash [Recovered/Resolved]

NARRATIVE: CASE EVENT DATE: 20250723
